FAERS Safety Report 8962340 (Version 1)
Quarter: 2012Q4

REPORT INFORMATION
  Report Type: Spontaneous
  Country: US (occurrence: None)
  Receive Date: 20121211
  Receipt Date: 20121211
  Transmission Date: 20130627
  Serious: Yes (Other)
  Sender: FDA-Public Use
  Company Number: None

PATIENT
  Age: 54 Year
  Sex: Female

DRUGS (1)
  1. CIPRO [Suspect]
     Indication: MASTOIDITIS
     Route: 048
     Dates: start: 20120216

REACTIONS (2)
  - Tendonitis [None]
  - Arthropathy [None]
